FAERS Safety Report 25625541 (Version 1)
Quarter: 2025Q3

REPORT INFORMATION
  Report Type: Report from Study
  Country: GB (occurrence: GB)
  Receive Date: 20250731
  Receipt Date: 20250731
  Transmission Date: 20251021
  Serious: Yes (Other)
  Sender: CELLTRION
  Company Number: GB-CELLTRION INC.-2025GB025724

PATIENT

DRUGS (1)
  1. INFLIXIMAB-DYYB [Suspect]
     Active Substance: INFLIXIMAB-DYYB
     Indication: Colitis ulcerative
     Dosage: REMSIMA 120MG EVERY 2 WKS
     Route: 058
     Dates: start: 20250416

REACTIONS (2)
  - Toothache [Unknown]
  - Ear pain [Unknown]

NARRATIVE: CASE EVENT DATE: 20250724
